FAERS Safety Report 7779351-9 (Version None)
Quarter: 2011Q3

REPORT INFORMATION
  Report Type: 
  Country: None (occurrence: None)
  Receive Date: 20110926
  Receipt Date: 20110910
  Transmission Date: 20111222
  Serious: Yes (Other)
  Sender: FDA-Public Use
  Company Number: PHHY2011JP81231

PATIENT
  Age: 63 Year
  Sex: Male

DRUGS (1)
  1. CYCLOSPORINE [Suspect]
     Indication: PUSTULAR PSORIASIS
     Dosage: UNK UKN, UNK
     Dates: start: 19950101

REACTIONS (9)
  - HYPERTENSION [None]
  - OEDEMA [None]
  - SQUAMOUS CELL CARCINOMA [None]
  - LEUKOCYTOSIS [None]
  - C-REACTIVE PROTEIN INCREASED [None]
  - ERYTHEMA [None]
  - RASH PUSTULAR [None]
  - ERYTHRODERMIC PSORIASIS [None]
  - SKIN DISORDER [None]
